FAERS Safety Report 4882971-2 (Version None)
Quarter: 2006Q1

REPORT INFORMATION
  Report Type: 
  Country: None (occurrence: None)
  Receive Date: 20060118
  Receipt Date: 20051219
  Transmission Date: 20060701
  Serious: Yes (Other)
  Sender: FDA-Public Use
  Company Number: US-AMGEN-STX162020

PATIENT
  Sex: Female

DRUGS (3)
  1. ENBREL [Suspect]
     Indication: PSORIASIS
     Dates: start: 20050101, end: 20051101
  2. ENBREL [Suspect]
     Indication: PSORIATIC ARTHROPATHY
  3. RAPTIVA [Concomitant]

REACTIONS (2)
  - ARTHRALGIA [None]
  - ECCHYMOSIS [None]
